FAERS Safety Report 18092679 (Version 1)
Quarter: 2020Q3

REPORT INFORMATION
  Report Type: Spontaneous
  Country: US (occurrence: US)
  Receive Date: 20200730
  Receipt Date: 20200730
  Transmission Date: 20201103
  Serious: Yes (Hospitalization, Other)
  Sender: FDA-Public Use
  Company Number: None

PATIENT
  Age: 73 Year
  Sex: Male

DRUGS (19)
  1. SMZ/TMP DS [Concomitant]
     Active Substance: SULFAMETHOXAZOLE\TRIMETHOPRIM
  2. TIZANIDINE. [Concomitant]
     Active Substance: TIZANIDINE
  3. MUPIROCIN. [Concomitant]
     Active Substance: MUPIROCIN
  4. LANSOPRAZOLE. [Concomitant]
     Active Substance: LANSOPRAZOLE
  5. ROSUVASTATIN. [Concomitant]
     Active Substance: ROSUVASTATIN
  6. FEROSUL [Concomitant]
     Active Substance: FERROUS SULFATE
  7. ACETAMIN [Concomitant]
     Active Substance: ACETAMINOPHEN
  8. DOK [Concomitant]
     Active Substance: DOCUSATE SODIUM
  9. CEFDINIR. [Concomitant]
     Active Substance: CEFDINIR
  10. TRIAMCINOLON [Concomitant]
  11. METHOCARBAM [Concomitant]
     Active Substance: METHOCARBAMOL
  12. DICLOFENAC GEL [Concomitant]
     Active Substance: DICLOFENAC
  13. GABAPENTIN. [Concomitant]
     Active Substance: GABAPENTIN
  14. FORTEO [Suspect]
     Active Substance: TERIPARATIDE
     Indication: OSTEOPOROSIS
     Route: 058
     Dates: start: 20191220
  15. CARVEDILOL. [Concomitant]
     Active Substance: CARVEDILOL
  16. DOXYCYCL HYC [Concomitant]
  17. OXYCODONE [Concomitant]
     Active Substance: OXYCODONE
  18. SUCRALFATE. [Concomitant]
     Active Substance: SUCRALFATE
  19. ENOXAPARIN [Concomitant]
     Active Substance: ENOXAPARIN

REACTIONS (3)
  - Surgery [None]
  - Therapy interrupted [None]
  - Hypotension [None]

NARRATIVE: CASE EVENT DATE: 20200729
